FAERS Safety Report 6641504-0 (Version None)
Quarter: 2010Q1

REPORT INFORMATION
  Report Type: 
  Country: None (occurrence: None)
  Receive Date: 20100317
  Receipt Date: 20100317
  Transmission Date: 20100710
  Serious: Yes (Other)
  Sender: FDA-Public Use
  Company Number: None

PATIENT
  Age: 25 Year
  Sex: Female

DRUGS (2)
  1. IOPAMIDOL [Suspect]
     Indication: SCAN WITH CONTRAST
     Dosage: 100 ML ONCE IV
     Route: 042
     Dates: start: 20091214
  2. RANITIDINE [Concomitant]

REACTIONS (2)
  - DYSPHONIA [None]
  - PHARYNGEAL OEDEMA [None]
